FAERS Safety Report 19740202 (Version 8)
Quarter: 2022Q4

REPORT INFORMATION
  Report Type: Spontaneous
  Country: JP (occurrence: JP)
  Receive Date: 20210823
  Receipt Date: 20221013
  Transmission Date: 20230113
  Serious: Yes (Death, Other)
  Sender: FDA-Public Use
  Company Number: JP-BRISTOL-MYERS SQUIBB COMPANY-BMS-2021-083391

PATIENT
  Age: 72 Year
  Sex: Male
  Weight: 42.4 kg

DRUGS (5)
  1. YERVOY [Suspect]
     Active Substance: IPILIMUMAB
     Indication: Metastatic renal cell carcinoma
     Dosage: 50 MILLIGRAM
     Route: 041
     Dates: start: 20210210, end: 20210210
  2. YERVOY [Suspect]
     Active Substance: IPILIMUMAB
     Dosage: 50 MILLIGRAM
     Route: 041
     Dates: start: 20210303, end: 20210303
  3. OPDIVO [Suspect]
     Active Substance: NIVOLUMAB
     Indication: Metastatic renal cell carcinoma
     Dosage: 240 MILLIGRAM
     Route: 041
     Dates: start: 20210210, end: 20210210
  4. OPDIVO [Suspect]
     Active Substance: NIVOLUMAB
     Dosage: 240 MILLIGRAM
     Route: 041
     Dates: start: 20210303, end: 20210303
  5. HEPARIN [Suspect]
     Active Substance: HEPARIN SODIUM
     Indication: Product used for unknown indication
     Dosage: UNK
     Route: 065
     Dates: end: 20210303

REACTIONS (7)
  - Rash [Recovering/Resolving]
  - Malignant neoplasm progression [Fatal]
  - Immune thrombocytopenia [Fatal]
  - Thrombotic microangiopathy [Fatal]
  - Autoimmune haemolytic anaemia [Fatal]
  - Paroxysmal nocturnal haemoglobinuria [Unknown]
  - Heparin-induced thrombocytopenia [Unknown]

NARRATIVE: CASE EVENT DATE: 20210212
